FAERS Safety Report 22000167 (Version 1)
Quarter: 2023Q1

REPORT INFORMATION
  Report Type: Spontaneous
  Country: US (occurrence: US)
  Receive Date: 20230216
  Receipt Date: 20230216
  Transmission Date: 20230417
  Serious: Yes (Other)
  Sender: FDA-Public Use
  Company Number: US-PFIZER INC-PV202300020596

PATIENT
  Age: 76 Year
  Sex: Female

DRUGS (1)
  1. IBRANCE [Suspect]
     Active Substance: PALBOCICLIB
     Dosage: 125 MG, DAILY (TAKE 1 TABLET BY MOUTH DAILY. ADMINISTER WITH OR WITHOUT FOOD)
     Route: 048

REACTIONS (2)
  - Nervous system disorder [Unknown]
  - Nephrectomy [Unknown]
